APPROVED DRUG PRODUCT: METHYLPHENIDATE HYDROCHLORIDE
Active Ingredient: METHYLPHENIDATE HYDROCHLORIDE
Strength: 20MG
Dosage Form/Route: TABLET;ORAL
Application: A213936 | Product #003 | TE Code: AB
Applicant: ACCORD HEALTHCARE INC
Approved: Oct 28, 2020 | RLD: No | RS: No | Type: RX